FAERS Safety Report 8392624-4 (Version None)
Quarter: 2012Q2

REPORT INFORMATION
  Report Type: 
  Country: None (occurrence: None)
  Receive Date: 20120529
  Receipt Date: 20120522
  Transmission Date: 20120825
  Serious: Yes (Death, Life-Threatening, Congenital Anomaly, Other)
  Sender: FDA-Public Use
  Company Number: GXKR2012DE001802

PATIENT

DRUGS (4)
  1. PRESINOL [Concomitant]
     Indication: PRE-ECLAMPSIA
     Dosage: MATERNAL DOSE: 1500 [MG/D ]
     Route: 064
     Dates: end: 20100629
  2. FOLSAURE [Concomitant]
     Indication: PROPHYLAXIS OF NEURAL TUBE DEFECT
     Dosage: MATERNAL DOSE 0.4 [MG/D ]
     Route: 064
  3. METFORMIN HCL [Suspect]
     Dosage: MATERNAL DOSE: 1500 MG, DAILY
     Route: 064
     Dates: start: 20091015, end: 20100629
  4. METFORMIN HCL [Suspect]
     Dosage: MATERNAL DOSE: 1000 MG, DAILY
     Route: 064

REACTIONS (8)
  - FOETAL EXPOSURE DURING PREGNANCY [None]
  - CONGENITAL THROMBOCYTE DISORDER [None]
  - HYPOXIC-ISCHAEMIC ENCEPHALOPATHY [None]
  - FEEDING DISORDER NEONATAL [None]
  - HYPOSPADIAS [None]
  - MACROCEPHALY [None]
  - CEREBRAL HAEMORRHAGE FOETAL [None]
  - NEONATAL RESPIRATORY DISTRESS SYNDROME [None]
